FAERS Safety Report 22393885 (Version 1)
Quarter: 2023Q2

REPORT INFORMATION
  Report Type: Spontaneous
  Country: CA (occurrence: CA)
  Receive Date: 20230601
  Receipt Date: 20230601
  Transmission Date: 20230722
  Serious: Yes (Hospitalization)
  Sender: FDA-Public Use
  Company Number: CA-China IPSEN SC-2023-12910

PATIENT
  Age: 48 Year
  Sex: Female

DRUGS (2)
  1. LANREOTIDE ACETATE [Suspect]
     Active Substance: LANREOTIDE ACETATE
     Indication: Neuroendocrine tumour
     Route: 058
  2. ZOMETA [Suspect]
     Active Substance: ZOLEDRONIC ACID
     Indication: Bone development abnormal
     Route: 065

REACTIONS (5)
  - Burning sensation [Recovered/Resolved]
  - Dry throat [Recovered/Resolved]
  - Influenza like illness [Recovered/Resolved]
  - Palpitations [Recovered/Resolved]
  - Tongue dry [Recovered/Resolved]
